FAERS Safety Report 14097649 (Version 1)
Quarter: 2017Q4

REPORT INFORMATION
  Report Type: Spontaneous
  Country: FR (occurrence: FR)
  Receive Date: 20171017
  Receipt Date: 20171017
  Transmission Date: 20180321
  Serious: Yes (Hospitalization)
  Sender: FDA-Public Use
  Company Number: FR-LEO PHARMA-303653

PATIENT
  Age: 65 Year
  Sex: Male

DRUGS (4)
  1. ANGIOTENSIN II RECEPTOR ANTAGONISTS NOS [Concomitant]
     Indication: PRODUCT USED FOR UNKNOWN INDICATION
  2. PICATO [Suspect]
     Active Substance: INGENOL MEBUTATE
     Indication: ACTINIC KERATOSIS
     Route: 061
     Dates: start: 20170628, end: 20170630
  3. BETA BLOCKER THERAPY NOS [Concomitant]
     Indication: PRODUCT USED FOR UNKNOWN INDICATION
  4. ACE INHIBITOR NOS [Concomitant]
     Active Substance: UNSPECIFIED INGREDIENT
     Indication: PRODUCT USED FOR UNKNOWN INDICATION

REACTIONS (12)
  - Application site vesicles [Recovered/Resolved]
  - Eyelid oedema [Recovered/Resolved]
  - Application site oedema [Recovered/Resolved]
  - Application site pain [Recovered/Resolved]
  - Medication error [Unknown]
  - Drug administration error [Unknown]
  - Application site exfoliation [Recovered/Resolved]
  - Application site pain [Recovered/Resolved]
  - Application site erythema [Recovered/Resolved]
  - Application site paraesthesia [Recovered/Resolved]
  - Application site pruritus [Recovered/Resolved]
  - Application site scab [Recovered/Resolved]

NARRATIVE: CASE EVENT DATE: 20170628
